FAERS Safety Report 5079353-X (Version None)
Quarter: 2006Q3

REPORT INFORMATION
  Report Type: 
  Country: None (occurrence: None)
  Receive Date: 20060809
  Receipt Date: 20060802
  Transmission Date: 20061208
  Serious: Yes (Hospitalization, Other)
  Sender: FDA-Public Use
  Company Number: 2006089786

PATIENT
  Age: 47 Year
  Sex: Female
  Weight: 86.1834 kg

DRUGS (8)
  1. GEODON [Suspect]
     Indication: SCHIZOAFFECTIVE DISORDER
     Dosage: 160 MG (160 MG, 1 IN 1 D), UNKNOWN
     Dates: start: 20050201
  2. LIPITOR [Suspect]
     Indication: DRUG USE FOR UNKNOWN INDICATION
  3. PAXIL CR [Concomitant]
  4. XANAX XR [Concomitant]
  5. AMBIEN (ZZOLPIDEM TARTRATE) [Concomitant]
  6. CLOZARIL [Concomitant]
  7. REMERON (MITAZAPINE) [Concomitant]
  8. ALL OTHER THERAPEUTIC PRODUCTS (ALL OTHER THERAPEUTIC PRODUCTS) [Concomitant]

REACTIONS (1)
  - VENTRICULAR FIBRILLATION [None]
